FAERS Safety Report 5706982-X (Version None)
Quarter: 2008Q2

REPORT INFORMATION
  Report Type: 
  Country: None (occurrence: None)
  Receive Date: 20080416
  Receipt Date: 20080409
  Transmission Date: 20081010
  Serious: Yes (Other)
  Sender: FDA-Public Use
  Company Number: JP-NOVOPROD-273911

PATIENT
  Age: 76 Year
  Sex: Male

DRUGS (2)
  1. NOVORAPID 30 MIX CHU [Suspect]
     Indication: DIABETES MELLITUS
     Dates: start: 20080403
  2. NOVOLIN 40R [Concomitant]
     Indication: DIABETES MELLITUS
     Dates: end: 20080403

REACTIONS (1)
  - HEPATIC ENZYME ABNORMAL [None]
